FAERS Safety Report 18588406 (Version 1)
Quarter: 2020Q4

REPORT INFORMATION
  Report Type: Spontaneous
  Country: US (occurrence: US)
  Receive Date: 20201207
  Receipt Date: 20201207
  Transmission Date: 20210114
  Serious: No
  Sender: FDA-Public Use
  Company Number: US-SIGMAPHARM LABORATORIES, LLC-2020SIG00024

PATIENT
  Sex: Female
  Weight: 54.42 kg

DRUGS (22)
  1. ^TRIEST^/PROGESTERONE [Concomitant]
     Dosage: 1 CAPSULES, 1X/DAY AT NIGHT
  2. CALCIUM/MAGNESIUM [Concomitant]
     Active Substance: CALCIUM\MAGNESIUM
     Dosage: 1 DOSAGE UNITS, 1X/DAY
  3. FISH OIL EPA DHA [Concomitant]
     Dosage: 1 CAPSULES , 2X/DAY; TOTAL DOSE OF ^720^
  4. ADAPT (INTERPLEXUS) [Concomitant]
     Dosage: UNK, 1X/DAY
  5. ESTRODIM (ORTHO MOLECULAR) [Concomitant]
     Dosage: UNK, 1X/DAY
  6. ORTHO BIOTICS (ORTHO MOLECULAR) [Concomitant]
     Dosage: UNK, 1X/DAY
  7. CANDICID FORTE (ORTHO MOLECULAR) [Concomitant]
     Dosage: 2 DOSAGE UNITS, 2X/DAY
  8. BONE MAXIMIZER 3 (MRM) [Concomitant]
     Dosage: UNK UNK, 1X/DAY
  9. LIOTHYRONINE SODIUM. [Suspect]
     Active Substance: LIOTHYRONINE SODIUM
     Indication: TRI-IODOTHYRONINE DECREASED
     Dosage: 10 ?G, 1X/DAY IN THE MORNING
     Route: 048
     Dates: start: 2016, end: 2019
  10. LIOTHYRONINE SODIUM. [Suspect]
     Active Substance: LIOTHYRONINE SODIUM
     Dosage: 5 ?G 1X/DAY
     Route: 048
     Dates: start: 2020, end: 20200211
  11. MULTIVITAMIN [Concomitant]
     Active Substance: VITAMINS
     Dosage: UNK, 1X/DAY
  12. DHEA [Concomitant]
     Active Substance: PRASTERONE
     Dosage: 10 MG, 1X/DAY
  13. UVA URSI [Concomitant]
     Dosage: 1 DOSAGE UNITS, 2X/DAY
  14. NATURE-THROID [Concomitant]
     Active Substance: THYROID, PORCINE
     Dosage: 48.75 MG, 1X/DAY IN THE MORNING
  15. SAM E [Concomitant]
     Dosage: 400 MG, 2X/DAY
  16. VITAMIN C [Concomitant]
     Active Substance: ASCORBIC ACID
     Dosage: 1000 MG, 2X/DAY
  17. LIOTHYRONINE SODIUM. [Suspect]
     Active Substance: LIOTHYRONINE SODIUM
     Indication: THYROID DISORDER
     Dosage: 10 ?G, 1X/DAY IN THE MORNING
     Route: 048
     Dates: end: 2020
  18. BODY PURE MD [Concomitant]
     Dosage: 3 DOSAGE UNITS, 1X/DAY
  19. THERBIOTIC (KLAIRE LABS) [Concomitant]
  20. BERBERCAP (THORNE) [Concomitant]
     Dosage: 1 DOSAGE UNITS, 2X/DAY
  21. VITAMIN D [Concomitant]
     Active Substance: VITAMIN D NOS
     Dosage: 5000 IU, 1X/DAY
  22. GARLIC. [Concomitant]
     Active Substance: GARLIC
     Dosage: 1250 MG, 2X/DAY

REACTIONS (10)
  - Asthenia [Recovering/Resolving]
  - Allergy to animal [Recovered/Resolved]
  - Secretion discharge [Recovered/Resolved]
  - Palpitations [Recovering/Resolving]
  - Tri-iodothyronine increased [Unknown]
  - Sneezing [Recovered/Resolved]
  - Feeling abnormal [Recovering/Resolving]
  - Product lot number issue [Recovered/Resolved]
  - Anxiety [Recovering/Resolving]
  - Nasal discomfort [Recovered/Resolved]

NARRATIVE: CASE EVENT DATE: 2020
